FAERS Safety Report 23804258 (Version 1)
Quarter: 2024Q2

REPORT INFORMATION
  Report Type: Spontaneous
  Country: JP (occurrence: JP)
  Receive Date: 20240501
  Receipt Date: 20240501
  Transmission Date: 20240717
  Serious: Yes (Other)
  Sender: FDA-Public Use
  Company Number: JP-ELI_LILLY_AND_COMPANY-JP202404013525

PATIENT
  Age: 95 Year
  Sex: Female

DRUGS (1)
  1. EVISTA [Suspect]
     Active Substance: RALOXIFENE HYDROCHLORIDE
     Indication: Product used for unknown indication
     Route: 048

REACTIONS (6)
  - Femur fracture [Recovered/Resolved]
  - Fall [Recovered/Resolved]
  - Vascular insufficiency [Unknown]
  - Compression fracture [Recovered/Resolved]
  - Cyanosis [Unknown]
  - Oedema peripheral [Unknown]
